FAERS Safety Report 6967850-9 (Version None)
Quarter: 2010Q3

REPORT INFORMATION
  Report Type: 
  Country: None (occurrence: None)
  Receive Date: 20100907
  Receipt Date: 20100310
  Transmission Date: 20110219
  Serious: No
  Sender: FDA-Public Use
  Company Number: A0849493A

PATIENT
  Sex: Female

DRUGS (2)
  1. REQUIP [Suspect]
     Indication: RESTLESS LEGS SYNDROME
     Dosage: 1MG TWICE PER DAY
     Route: 048
     Dates: start: 20070101
  2. ROPINIROLE [Suspect]
     Route: 048

REACTIONS (9)
  - DIZZINESS [None]
  - FEELING ABNORMAL [None]
  - HANGOVER [None]
  - HEADACHE [None]
  - MALAISE [None]
  - MIDDLE INSOMNIA [None]
  - RESTLESS LEGS SYNDROME [None]
  - THERAPEUTIC RESPONSE DELAYED [None]
  - VERTIGO [None]
